FAERS Safety Report 8480227-2 (Version None)
Quarter: 2012Q2

REPORT INFORMATION
  Report Type: 
  Country: None (occurrence: None)
  Receive Date: 20120629
  Receipt Date: 20120619
  Transmission Date: 20120825
  Serious: No
  Sender: FDA-Public Use
  Company Number: US-ASTRAZENECA-2012SE29171

PATIENT
  Age: 74 Year
  Sex: Female
  Weight: 63 kg

DRUGS (6)
  1. KOREG [Concomitant]
  2. ASPIRIN [Suspect]
     Route: 065
  3. RANOLAZINE [Concomitant]
  4. HUMULIN R [Concomitant]
     Indication: DIABETES MELLITUS
  5. BRILINTA [Suspect]
     Indication: ACUTE CORONARY SYNDROME
     Route: 048
     Dates: start: 20120121
  6. OMEPRAZOLE [Concomitant]
     Route: 048

REACTIONS (3)
  - INCREASED TENDENCY TO BRUISE [None]
  - HAEMATOMA [None]
  - PAIN [None]
